FAERS Safety Report 9341759 (Version 1)
Quarter: 2013Q2

REPORT INFORMATION
  Report Type: Spontaneous
  Country: US (occurrence: None)
  Receive Date: 20130606
  Receipt Date: 20130606
  Transmission Date: 20140414
  Serious: Yes (Other)
  Sender: FDA-Public Use
  Company Number: 2013SA055800

PATIENT
  Age: 37 Year
  Sex: Female

DRUGS (1)
  1. ICY HOT [Suspect]
     Indication: MYALGIA
     Dates: start: 20130515

REACTIONS (4)
  - Drug ineffective [None]
  - Burning sensation [None]
  - Erythema [None]
  - Scab [None]
